FAERS Safety Report 5413685-8 (Version None)
Quarter: 2007Q3

REPORT INFORMATION
  Report Type: 
  Country: None (occurrence: None)
  Receive Date: 20070814
  Receipt Date: 20070809
  Transmission Date: 20080115
  Serious: Yes (Other)
  Sender: FDA-Public Use
  Company Number: A0655088A

PATIENT
  Age: 13 Year
  Sex: Male

DRUGS (5)
  1. ADVAIR DISKUS 100/50 [Suspect]
     Indication: DRUG USE FOR UNKNOWN INDICATION
     Route: 055
     Dates: start: 20051101
  2. SINGULAIR [Concomitant]
     Dosage: 10MG PER DAY
  3. NASONEX [Concomitant]
     Dosage: 2SPR AT NIGHT
  4. FLONASE [Concomitant]
     Dosage: 2SPR AT NIGHT
  5. CLARITIN [Concomitant]
     Dosage: 10MG AS REQUIRED

REACTIONS (4)
  - BENIGN INTRACRANIAL HYPERTENSION [None]
  - GASTROINTESTINAL DISORDER [None]
  - GENERAL PHYSICAL HEALTH DETERIORATION [None]
  - WEIGHT INCREASED [None]
